FAERS Safety Report 21387148 (Version 1)
Quarter: 2022Q3

REPORT INFORMATION
  Report Type: Spontaneous
  Country: FR (occurrence: FR)
  Receive Date: 20220928
  Receipt Date: 20220928
  Transmission Date: 20221026
  Serious: Yes (Disabling, Other)
  Sender: FDA-Public Use
  Company Number: None

PATIENT
  Age: 51 Year
  Sex: Male

DRUGS (1)
  1. DUPIXENT [Suspect]
     Active Substance: DUPILUMAB
     Indication: Dermatitis atopic
     Dosage: 300 MG, QOW
     Route: 058
     Dates: start: 20190704, end: 20220228

REACTIONS (3)
  - Punctate keratitis [Recovering/Resolving]
  - Conjunctivitis [Recovering/Resolving]
  - Blepharitis [Recovering/Resolving]

NARRATIVE: CASE EVENT DATE: 20190701
